FAERS Safety Report 20801462 (Version 1)
Quarter: 2022Q2

REPORT INFORMATION
  Report Type: Other
  Country: IT (occurrence: IT)
  Receive Date: 20220509
  Receipt Date: 20220509
  Transmission Date: 20220720
  Serious: Yes (Other)
  Sender: FDA-Public Use
  Company Number: IT-CELLTRION HEALTHCARE HUNGARY KFT-2021IT003402

PATIENT

DRUGS (7)
  1. MABTHERA [Suspect]
     Active Substance: RITUXIMAB
     Indication: Diffuse large B-cell lymphoma stage IV
     Dosage: UNK, 1ST LINE TREATMENT (R-CHOP)
     Route: 065
  2. MABTHERA [Suspect]
     Active Substance: RITUXIMAB
     Dosage: UNK, 2ND LINE TREATMENT (R-CHOP)
     Route: 065
  3. RITUXIMAB [Suspect]
     Active Substance: RITUXIMAB
     Indication: Diffuse large B-cell lymphoma stage IV
     Dosage: UNK, 2ND LINE TREATMENT (R-DHAP)
     Route: 042
  4. RITUXIMAB [Suspect]
     Active Substance: RITUXIMAB
     Dosage: UNK, 1ST LINE TREATMENT (R-CHOP)
     Route: 042
  5. CISPLATIN\CYTARABINE\DEXAMETHASONE [Suspect]
     Active Substance: CISPLATIN\CYTARABINE\DEXAMETHASONE
     Indication: Diffuse large B-cell lymphoma stage IV
     Dosage: UNK, 2ND LINE TREATMENT (R-DHAP)
     Route: 065
  6. CYCLOPHOSPHAMIDE\DOXORUBICIN\PREDNISONE\VINCRISTINE [Suspect]
     Active Substance: CYCLOPHOSPHAMIDE\DOXORUBICIN\PREDNISONE\VINCRISTINE
     Indication: Diffuse large B-cell lymphoma stage IV
     Dosage: UNK, 1ST LINE TREATMENT (R-CHOP)
     Route: 065
  7. DACLATASVIR\SOFOSBUVIR [Concomitant]
     Active Substance: DACLATASVIR\SOFOSBUVIR
     Indication: Hepatitis C
     Dosage: UNK

REACTIONS (2)
  - Diffuse large B-cell lymphoma recurrent [Unknown]
  - Disease progression [Unknown]
